FAERS Safety Report 9568211 (Version 1)
Quarter: 2013Q3

REPORT INFORMATION
  Report Type: Spontaneous
  Country: US (occurrence: US)
  Receive Date: 20130930
  Receipt Date: 20130930
  Transmission Date: 20140515
  Serious: No
  Sender: FDA-Public Use
  Company Number: US-AMGEN-USASP2013053277

PATIENT
  Age: 50 Year
  Sex: Female
  Weight: 86 kg

DRUGS (6)
  1. ENBREL [Suspect]
     Indication: PRODUCT USED FOR UNKNOWN INDICATION
     Dosage: 50 MG, 2 TIMES/WK
     Route: 065
  2. LEVOXYL [Concomitant]
     Dosage: 112 MUG, UNK
  3. EFFEXOR XR [Concomitant]
     Dosage: 37.5 MG, UNK
  4. VERAPAMIL [Concomitant]
     Dosage: 120 MG, ER
  5. VITAMIN C                          /00008001/ [Concomitant]
     Dosage: 500 MG, UNK
  6. METHOTREXATE [Concomitant]
     Dosage: 20 MG, UNK

REACTIONS (4)
  - Drug ineffective [Unknown]
  - Ingrowing nail [Recovered/Resolved]
  - Foot deformity [Recovered/Resolved]
  - Localised infection [Recovered/Resolved]
